FAERS Safety Report 6354257-0 (Version None)
Quarter: 2009Q3

REPORT INFORMATION
  Report Type: 
  Country: None (occurrence: None)
  Receive Date: 20090914
  Receipt Date: 20090813
  Transmission Date: 20100115
  Serious: No
  Sender: FDA-Public Use
  Company Number: US-BAYER-200929908NA

PATIENT
  Age: 64 Year
  Sex: Female

DRUGS (7)
  1. AVELOX [Suspect]
     Indication: SINUSITIS
     Route: 065
     Dates: start: 20090501
  2. BIAXIN [Suspect]
     Indication: SINUSITIS
     Dosage: UNIT DOSE: 500 MG
     Route: 048
     Dates: start: 20090501
  3. BIAXIN [Suspect]
     Dosage: UNIT DOSE: 500 MG
     Route: 048
     Dates: start: 20090711
  4. PINDOLOL [Concomitant]
     Indication: HYPERTENSION
  5. MONTELUKAST SODIUM [Concomitant]
     Indication: SEASONAL ALLERGY
  6. FEXOFENADINE [Concomitant]
     Indication: SEASONAL ALLERGY
  7. GUAIFENESIN [Concomitant]
     Indication: SEASONAL ALLERGY
     Route: 048

REACTIONS (3)
  - BURNING SENSATION [None]
  - HYPOAESTHESIA [None]
  - PAIN IN EXTREMITY [None]
